FAERS Safety Report 15578655 (Version 1)
Quarter: 2018Q4

REPORT INFORMATION
  Report Type: Spontaneous
  Country: US (occurrence: US)
  Receive Date: 20181029
  Receipt Date: 20181029
  Transmission Date: 20190205
  Serious: Yes (Hospitalization)
  Sender: FDA-Public Use
  Company Number: None

PATIENT
  Age: 62 Year
  Sex: Male
  Weight: 102.06 kg

DRUGS (1)
  1. DAPTOMYCIN. [Suspect]
     Active Substance: DAPTOMYCIN
     Indication: OSTEOMYELITIS
     Route: 042
     Dates: start: 20180601, end: 20180605

REACTIONS (6)
  - Cough [None]
  - Infusion related reaction [None]
  - Eosinophilia [None]
  - Chest discomfort [None]
  - Renal impairment [None]
  - Fluid overload [None]

NARRATIVE: CASE EVENT DATE: 20180626
